FAERS Safety Report 7339644-6 (Version None)
Quarter: 2011Q1

REPORT INFORMATION
  Report Type: 
  Country: None (occurrence: None)
  Receive Date: 20110308
  Receipt Date: 20110301
  Transmission Date: 20110831
  Serious: Yes (Death)
  Sender: FDA-Public Use
  Company Number: US-GILEAD-2011-0036849

PATIENT
  Sex: Male

DRUGS (3)
  1. TYVASO [Concomitant]
  2. ADCIRCA [Concomitant]
  3. LETAIRIS [Suspect]
     Indication: PULMONARY HYPERTENSION
     Route: 048
     Dates: start: 20100610, end: 20110217

REACTIONS (2)
  - CARDIAC ARREST [None]
  - RIGHT VENTRICULAR FAILURE [None]
